FAERS Safety Report 18201646 (Version 1)
Quarter: 2020Q3

REPORT INFORMATION
  Report Type: Spontaneous
  Country: US (occurrence: US)
  Receive Date: 20200827
  Receipt Date: 20200827
  Transmission Date: 20201103
  Serious: Yes (Other)
  Sender: FDA-Public Use
  Company Number: US-ALLERGAN-2015586US

PATIENT

DRUGS (1)
  1. FIORINAL WITH CODEINE [Suspect]
     Active Substance: ASPIRIN\BUTALBITAL\CAFFEINE\CODEINE PHOSPHATE
     Indication: PRODUCT USED FOR UNKNOWN INDICATION
     Dosage: OVER 10 TABLETS PER DAY

REACTIONS (4)
  - Loss of employment [Unknown]
  - Drug dependence [Unknown]
  - Prescribed overdose [Unknown]
  - Emotional distress [Unknown]

NARRATIVE: CASE EVENT DATE: 2000
